FAERS Safety Report 8037696-1 (Version None)
Quarter: 2012Q1

REPORT INFORMATION
  Report Type: 
  Country: None (occurrence: None)
  Receive Date: 20120111
  Receipt Date: 20120102
  Transmission Date: 20120608
  Serious: Yes (Hospitalization)
  Sender: FDA-Public Use
  Company Number: FR-ASTRAZENECA-2012SE00516

PATIENT
  Sex: Male

DRUGS (4)
  1. EZETIMIBE [Suspect]
     Route: 048
     Dates: start: 20101012, end: 20101202
  2. NEXIUM [Suspect]
     Route: 048
     Dates: start: 20101012, end: 20101130
  3. PREVISCAN [Suspect]
     Indication: DEEP VEIN THROMBOSIS
     Route: 048
     Dates: start: 20101012, end: 20101130
  4. INDAPAMIDE [Concomitant]
     Dosage: 2 MG / 0.625 MG
     Route: 048
     Dates: end: 20101130

REACTIONS (3)
  - TUBULOINTERSTITIAL NEPHRITIS [None]
  - NEPHRITIS ALLERGIC [None]
  - RENAL FAILURE ACUTE [None]
